FAERS Safety Report 5224336-X (Version None)
Quarter: 2007Q1

REPORT INFORMATION
  Report Type: 
  Country: None (occurrence: None)
  Receive Date: 20070130
  Receipt Date: 20070129
  Transmission Date: 20070707
  Serious: Yes (Life-Threatening, Hospitalization)
  Sender: FDA-Public Use
  Company Number: DE-BOEHRINGER INGELHEIM PHARMACEUTICALS, INC.-2007-DE-00520DE

PATIENT
  Sex: Female
  Weight: 54 kg

DRUGS (1)
  1. AGGRENOX [Suspect]
     Indication: MICROANGIOPATHY
     Route: 048
     Dates: start: 20061201, end: 20070103

REACTIONS (1)
  - GASTRIC HAEMORRHAGE [None]
